FAERS Safety Report 14258351 (Version 1)
Quarter: 2017Q4

REPORT INFORMATION
  Report Type: Spontaneous
  Country: SG (occurrence: SG)
  Receive Date: 20171130
  Receipt Date: 20171130
  Transmission Date: 20180321
  Serious: Yes (Hospitalization, Disabling)
  Sender: FDA-Public Use
  Company Number: None

PATIENT

DRUGS (2)
  1. ELOMET [Suspect]
     Active Substance: MOMETASONE FUROATE
  2. CYCLOSPORIN [Concomitant]
     Active Substance: CYCLOSPORINE

REACTIONS (2)
  - Eczema [None]
  - Condition aggravated [None]

NARRATIVE: CASE EVENT DATE: 20101201
